FAERS Safety Report 21411626 (Version 1)
Quarter: 2022Q4

REPORT INFORMATION
  Report Type: Spontaneous
  Country: US (occurrence: US)
  Receive Date: 20221005
  Receipt Date: 20221005
  Transmission Date: 20230113
  Serious: No
  Sender: FDA-Public Use
  Company Number: US-JUBILANT CADISTA PHARMACEUTICALS INC.-2022JUB00173

PATIENT
  Sex: Male

DRUGS (9)
  1. PREDNISONE [Suspect]
     Active Substance: PREDNISONE
     Indication: Osteoporosis
     Dosage: 10 MG
     Route: 065
  2. PREDNISONE [Suspect]
     Active Substance: PREDNISONE
     Indication: Polymyalgia rheumatica
     Dosage: 10 MG
     Route: 065
  3. PREDNISONE [Suspect]
     Active Substance: PREDNISONE
     Dosage: 5 MG
     Route: 065
     Dates: start: 2021, end: 20211231
  4. ENZALUTAMIDE [Suspect]
     Active Substance: ENZALUTAMIDE
     Indication: Prostate cancer
     Dosage: 120 MG
     Route: 048
  5. ENZALUTAMIDE [Suspect]
     Active Substance: ENZALUTAMIDE
     Indication: Prostatic specific antigen increased
     Dosage: 80 MG
     Route: 048
  6. ENZALUTAMIDE [Suspect]
     Active Substance: ENZALUTAMIDE
     Dosage: 40-80 MG, 1X/DAY
     Route: 048
     Dates: start: 2018
  7. ENZALUTAMIDE [Suspect]
     Active Substance: ENZALUTAMIDE
     Dosage: 40-80 MG, 1X/DAY
     Route: 048
     Dates: start: 20200918
  8. ENZALUTAMIDE [Suspect]
     Active Substance: ENZALUTAMIDE
     Dosage: 160 MG, 1X/DAY
     Dates: start: 20220613
  9. IBANDRONATE SODIUM [Concomitant]
     Active Substance: IBANDRONATE SODIUM

REACTIONS (2)
  - Bone loss [Unknown]
  - Off label use [Unknown]
